FAERS Safety Report 16170561 (Version 2)
Quarter: 2019Q2

REPORT INFORMATION
  Report Type: Report from Study
  Country: TR (occurrence: TR)
  Receive Date: 20190408
  Receipt Date: 20190413
  Transmission Date: 20190711
  Serious: Yes (Hospitalization)
  Sender: FDA-Public Use
  Company Number: TR-AMGEN-TURSP2019055587

PATIENT
  Age: 51 Year
  Sex: Male
  Weight: 63 kg

DRUGS (2)
  1. CINACALCET HCL [Suspect]
     Active Substance: CINACALCET HYDROCHLORIDE
     Indication: BLOOD PARATHYROID HORMONE INCREASED
     Dosage: 1 UNK, QD
     Route: 048
     Dates: start: 20170719, end: 20190115
  2. DILATREND [Concomitant]
     Active Substance: CARVEDILOL
     Indication: TACHYCARDIA
     Dosage: 1 UNK, FREQUENCY 2
     Dates: start: 20170429

REACTIONS (1)
  - Hyperparathyroidism secondary [Recovered/Resolved]
